FAERS Safety Report 8758002 (Version 2)
Quarter: 2012Q4

REPORT INFORMATION
  Report Type: Report from Study
  Country: GB (occurrence: GB)
  Receive Date: 20120828
  Receipt Date: 20120927
  Transmission Date: 20130627
  Serious: Yes (Hospitalization)
  Sender: FDA-Public Use
  Company Number: GB-AMGEN-GBRCT2012053523

PATIENT
  Age: 52 Year
  Sex: Male
  Weight: 92 kg

DRUGS (1)
  1. ETANERCEPT [Suspect]
     Indication: PRODUCT USED FOR UNKNOWN INDICATION
     Dosage: 25 mg, 2x/week
     Dates: end: 20100915

REACTIONS (1)
  - Psoriasis [Recovered/Resolved]
